FAERS Safety Report 25854218 (Version 1)
Quarter: 2025Q3

REPORT INFORMATION
  Report Type: Spontaneous
  Country: GB (occurrence: GB)
  Receive Date: 20250926
  Receipt Date: 20250926
  Transmission Date: 20251021
  Serious: Yes (Other)
  Sender: PFIZER
  Company Number: GB-PFIZER INC-202500190107

PATIENT
  Age: 68 Year
  Sex: Female

DRUGS (4)
  1. VORICONAZOLE [Suspect]
     Active Substance: VORICONAZOLE
     Indication: Disseminated coccidioidomycosis
     Dosage: 6 MG/KG 2 DOSES 12 HOURLY
     Route: 042
     Dates: start: 2024, end: 2024
  2. VORICONAZOLE [Suspect]
     Active Substance: VORICONAZOLE
     Dosage: 4 MG/KG 12 HOURLY
     Route: 042
     Dates: start: 2024, end: 2024
  3. AMBISOME [Suspect]
     Active Substance: AMPHOTERICIN B
     Indication: Disseminated coccidioidomycosis
     Route: 042
     Dates: start: 2024, end: 2024
  4. HYDROCORTISONE [Concomitant]
     Active Substance: HYDROCORTISONE
     Indication: Adrenal insufficiency
     Dates: start: 2024

REACTIONS (1)
  - Electrolyte imbalance [Unknown]
